FAERS Safety Report 20448690 (Version 1)
Quarter: 2022Q1

REPORT INFORMATION
  Report Type: Spontaneous
  Country: CN (occurrence: CN)
  Receive Date: 20220209
  Receipt Date: 20220209
  Transmission Date: 20220423
  Serious: Yes (Hospitalization)
  Sender: FDA-Public Use
  Company Number: CN-PFIZER INC-202200157692

PATIENT
  Age: 53 Year
  Sex: Female
  Weight: 55 kg

DRUGS (6)
  1. VFEND [Suspect]
     Active Substance: VORICONAZOLE
     Indication: Pneumonia fungal
     Dosage: 200 MG, 2X/DAY
     Route: 041
     Dates: start: 20220110, end: 20220117
  2. VFEND [Suspect]
     Active Substance: VORICONAZOLE
     Indication: Liver abscess
  3. VFEND [Suspect]
     Active Substance: VORICONAZOLE
     Indication: Septic shock
  4. TYGACIL [Concomitant]
     Active Substance: TIGECYCLINE
     Indication: Liver abscess
     Dosage: 50 MG, 2X/DAY
     Route: 041
     Dates: start: 20220110, end: 20220117
  5. TYGACIL [Concomitant]
     Active Substance: TIGECYCLINE
     Indication: Septic shock
  6. TYGACIL [Concomitant]
     Active Substance: TIGECYCLINE
     Indication: Sepsis

REACTIONS (2)
  - Drug-induced liver injury [Recovering/Resolving]
  - Blood bilirubin increased [Recovering/Resolving]

NARRATIVE: CASE EVENT DATE: 20220114
